FAERS Safety Report 9927440 (Version 1)
Quarter: 2014Q1

REPORT INFORMATION
  Report Type: Spontaneous
  Country: GB (occurrence: GB)
  Receive Date: 20140227
  Receipt Date: 20140227
  Transmission Date: 20141002
  Serious: Yes (Other)
  Sender: FDA-Public Use
  Company Number: GB-ROCHE-1355704

PATIENT
  Age: 46 Year
  Sex: Female

DRUGS (2)
  1. XENICAL [Suspect]
     Indication: WEIGHT DECREASED
     Route: 065
  2. PROVERA [Interacting]
     Indication: MENORRHAGIA
     Route: 065
     Dates: start: 201310

REACTIONS (2)
  - Endometrial hyperplasia [Unknown]
  - Anaemia [Unknown]
